FAERS Safety Report 4748952-4 (Version None)
Quarter: 2005Q3

REPORT INFORMATION
  Report Type: 
  Country: None (occurrence: None)
  Receive Date: 20050819
  Receipt Date: 20050315
  Transmission Date: 20060218
  Serious: Yes (Hospitalization)
  Sender: FDA-Public Use
  Company Number: US-MERCK-0503USA03203

PATIENT
  Age: 57 Year
  Sex: Male
  Weight: 109 kg

DRUGS (12)
  1. VIOXX [Suspect]
     Indication: RHEUMATOID ARTHRITIS
     Route: 048
     Dates: start: 20010301, end: 20010925
  2. PREDNISONE [Concomitant]
     Route: 065
  3. METHOTREXATE [Concomitant]
     Route: 065
     Dates: start: 19980101
  4. ASPIRIN [Concomitant]
     Route: 048
     Dates: start: 20010301
  5. TYLENOL [Concomitant]
     Route: 065
     Dates: start: 19990101
  6. PRILOSEC [Concomitant]
     Route: 065
  7. FOLIC ACID [Concomitant]
     Route: 065
  8. VENTOLIN [Concomitant]
     Route: 065
  9. PAXIL [Concomitant]
     Route: 065
  10. VITAMIN A [Concomitant]
     Route: 065
  11. KLONOPIN [Concomitant]
     Route: 065
  12. MONOPRIL [Concomitant]
     Route: 065

REACTIONS (7)
  - CEREBROVASCULAR ACCIDENT [None]
  - DEPRESSION [None]
  - GOUTY ARTHRITIS [None]
  - HYPERTENSION [None]
  - OSTEOARTHRITIS [None]
  - PEPTIC ULCER [None]
  - SEASONAL ALLERGY [None]
